FAERS Safety Report 8530703 (Version 2)
Quarter: 2013Q1

REPORT INFORMATION
  Report Type: Spontaneous
  Country: US (occurrence: US)
  Receive Date: 20120425
  Receipt Date: 20130220
  Transmission Date: 20140127
  Serious: Yes (Other)
  Sender: FDA-Public Use
  Company Number: US-AMGEN-USASP2012024819

PATIENT
  Age: 0 None
  Sex: 0

DRUGS (1)
  1. ENBREL [Suspect]
     Dosage: 50 MG, 2 TIMES/WK
     Route: 064
     Dates: start: 2006

REACTIONS (2)
  - Premature baby [Recovered/Resolved]
  - Exposure during breast feeding [Not Recovered/Not Resolved]
